FAERS Safety Report 15637151 (Version 1)
Quarter: 2018Q4

REPORT INFORMATION
  Report Type: Spontaneous
  Country: US (occurrence: US)
  Receive Date: 20181120
  Receipt Date: 20181120
  Transmission Date: 20190205
  Serious: No
  Sender: FDA-Public Use
  Company Number: US-JNJFOC-20180416989

PATIENT
  Age: 79 Year
  Sex: Male

DRUGS (16)
  1. IMBRUVICA [Suspect]
     Active Substance: IBRUTINIB
     Indication: CHRONIC LYMPHOCYTIC LEUKAEMIA
     Route: 048
     Dates: start: 20141209
  2. CEFALEXIN [Concomitant]
     Active Substance: CEPHALEXIN
  3. IMBRUVICA [Suspect]
     Active Substance: IBRUTINIB
     Indication: CHRONIC LYMPHOCYTIC LEUKAEMIA
     Route: 048
     Dates: start: 20180330
  4. VITAMIN B12 [Concomitant]
     Active Substance: CYANOCOBALAMIN
  5. VITAMIN D [Concomitant]
     Active Substance: CHOLECALCIFEROL
  6. RITUXAN [Concomitant]
     Active Substance: RITUXIMAB
  7. IMBRUVICA [Suspect]
     Active Substance: IBRUTINIB
     Indication: CHRONIC LYMPHOCYTIC LEUKAEMIA
     Route: 048
     Dates: start: 201712
  8. LASIX [Concomitant]
     Active Substance: FUROSEMIDE
  9. POTASSIUM [Concomitant]
     Active Substance: POTASSIUM
  10. HYDROCODONE [Concomitant]
     Active Substance: HYDROCODONE
  11. OMEPRAZOLE. [Concomitant]
     Active Substance: OMEPRAZOLE
  12. TRAMADOL. [Concomitant]
     Active Substance: TRAMADOL
  13. COQ 10 [Concomitant]
     Active Substance: UBIDECARENONE
  14. LECITHIN [Concomitant]
     Active Substance: LECITHIN
  15. ZINC. [Concomitant]
     Active Substance: ZINC
  16. LYRICA [Concomitant]
     Active Substance: PREGABALIN

REACTIONS (3)
  - Incorrect dose administered [Unknown]
  - Myalgia [Unknown]
  - Nerve compression [Unknown]

NARRATIVE: CASE EVENT DATE: 201712
